FAERS Safety Report 11894896 (Version 2)
Quarter: 2016Q1

REPORT INFORMATION
  Report Type: Spontaneous
  Country: US (occurrence: US)
  Receive Date: 20160107
  Receipt Date: 20160120
  Transmission Date: 20160526
  Serious: Yes (Other)
  Sender: FDA-Public Use
  Company Number: US-BECTON DICKINSON-2015BDN00009

PATIENT
  Age: 35 Year
  Sex: Female

DRUGS (1)
  1. CHLORAPREP WITH TINT [Suspect]
     Active Substance: CHLORHEXIDINE GLUCONATE\ISOPROPYL ALCOHOL
     Indication: INFECTION PROPHYLAXIS
     Dosage: UNK, ONCE TO LEFT LEG UP TO TOURNIQUET AND DOWN TO TIP OF TOES
     Route: 061
     Dates: start: 20150710, end: 20150710

REACTIONS (4)
  - Blister [Unknown]
  - Burns third degree [None]
  - Chemical burn of skin [Recovered/Resolved]
  - Skin exfoliation [None]

NARRATIVE: CASE EVENT DATE: 20150710
